FAERS Safety Report 20689597 (Version 2)
Quarter: 2022Q2

REPORT INFORMATION
  Report Type: Spontaneous
  Country: JP (occurrence: JP)
  Receive Date: 20220408
  Receipt Date: 20220426
  Transmission Date: 20220720
  Serious: Yes (Death)
  Sender: FDA-Public Use
  Company Number: JP-NOVARTISPH-NVSJ2022JP004784

PATIENT
  Age: 76 Year
  Sex: Female

DRUGS (8)
  1. DICLOFENAC SODIUM [Suspect]
     Active Substance: DICLOFENAC SODIUM
     Indication: Lumbar vertebral fracture
     Dosage: 25 MG (ONCE OR TWICE PER DAY )
     Route: 054
     Dates: start: 20210527, end: 20210604
  2. PREGABALIN [Suspect]
     Active Substance: PREGABALIN
     Indication: Neuralgia
     Dosage: 50 MG, BID
     Route: 048
     Dates: start: 20210428, end: 20210604
  3. CALONAL [Suspect]
     Active Substance: ACETAMINOPHEN
     Indication: Back pain
     Dosage: 500 MG, BID, AFTER BREAKFAST AND DINNER
     Route: 048
     Dates: start: 20210324
  4. CALONAL [Suspect]
     Active Substance: ACETAMINOPHEN
     Dosage: 200 MG, BID
     Route: 048
     Dates: start: 20210527, end: 20210604
  5. METHYLCOBALAMIN [Concomitant]
     Active Substance: METHYLCOBALAMIN
     Indication: Hypoaesthesia
     Dosage: 500 UG, BID
     Route: 048
     Dates: start: 20210428, end: 20210604
  6. METHYLCOBALAMIN [Concomitant]
     Active Substance: METHYLCOBALAMIN
     Indication: Neuralgia
  7. REBAMIPIDE [Concomitant]
     Active Substance: REBAMIPIDE
     Indication: Prophylaxis against gastrointestinal ulcer
     Dosage: 1 DOSAGE FORM, BID
     Route: 048
     Dates: start: 20210513, end: 20210527
  8. KETOPROFEN [Concomitant]
     Active Substance: KETOPROFEN
     Indication: Back pain
     Dosage: 1 DOSAGE FORM, BID
     Route: 062
     Dates: start: 20210513, end: 20210604

REACTIONS (3)
  - Duodenal ulcer haemorrhage [Fatal]
  - Shock haemorrhagic [Fatal]
  - Loss of consciousness [Fatal]

NARRATIVE: CASE EVENT DATE: 20210604
